FAERS Safety Report 9665112 (Version 2)
Quarter: 2013Q4

REPORT INFORMATION
  Report Type: Spontaneous
  Country: FR (occurrence: FR)
  Receive Date: 20131101
  Receipt Date: 20131223
  Transmission Date: 20140711
  Serious: Yes (Life-Threatening, Other)
  Sender: FDA-Public Use
  Company Number: FR-ABBVIE-13P-056-1163170-00

PATIENT
  Age: 42 Year
  Sex: Female

DRUGS (6)
  1. ULTANE [Suspect]
     Indication: PRODUCT USED FOR UNKNOWN INDICATION
     Route: 055
     Dates: start: 20131002, end: 20131004
  2. B2 MIMETIC [Concomitant]
     Indication: PRODUCT USED FOR UNKNOWN INDICATION
  3. ANTI CHOLINERGIC DRUG NOS [Concomitant]
     Indication: PRODUCT USED FOR UNKNOWN INDICATION
  4. SULFATES MAGNESIUM [Concomitant]
     Indication: PRODUCT USED FOR UNKNOWN INDICATION
  5. KATAMINE [Concomitant]
     Indication: PRODUCT USED FOR UNKNOWN INDICATION
  6. CORTICOTHERAPY [Concomitant]
     Indication: PRODUCT USED FOR UNKNOWN INDICATION

REACTIONS (9)
  - Hyperthermia [Unknown]
  - Hyperthermia malignant [Recovered/Resolved]
  - Drug ineffective [Unknown]
  - Hypercapnia [Unknown]
  - Tachycardia [Unknown]
  - Electrolyte imbalance [Unknown]
  - Haemodynamic instability [Unknown]
  - Pneumonia bacterial [Recovered/Resolved]
  - Mechanical ventilation [Recovered/Resolved]
